FAERS Safety Report 4822522-1 (Version None)
Quarter: 2005Q4

REPORT INFORMATION
  Report Type: 
  Country: None (occurrence: None)
  Receive Date: 20051108
  Receipt Date: 20051027
  Transmission Date: 20060501
  Serious: Yes (Death)
  Sender: FDA-Public Use
  Company Number: US-JNJFOC-20051006205

PATIENT
  Sex: Female
  Weight: 55.79 kg

DRUGS (10)
  1. INFLIXIMAB [Suspect]
     Indication: RHEUMATOID ARTHRITIS
     Route: 042
  2. SYNTHROID [Concomitant]
  3. LISINOPRIL [Concomitant]
  4. MAXAIR [Concomitant]
  5. METHOTREXATE [Concomitant]
  6. FOLIC ACID [Concomitant]
  7. LASIX [Concomitant]
  8. ACTONEL [Concomitant]
  9. VALDECOXIB [Concomitant]
     Dosage: 10-20 MG DAILY
  10. MULTIVITAMIN WITH IRON [Concomitant]

REACTIONS (3)
  - ASTHMA [None]
  - CARDIAC FAILURE CONGESTIVE [None]
  - LUNG INFECTION PSEUDOMONAL [None]
